FAERS Safety Report 7337998-8 (Version None)
Quarter: 2011Q1

REPORT INFORMATION
  Report Type: 
  Country: None (occurrence: None)
  Receive Date: 20110308
  Receipt Date: 20110301
  Transmission Date: 20110831
  Serious: Yes (Hospitalization, Other)
  Sender: FDA-Public Use
  Company Number: CA-ABBOTT-10P-028-0635776-00

PATIENT
  Sex: Female
  Weight: 54 kg

DRUGS (7)
  1. TYLENOL [Concomitant]
     Indication: PRODUCT USED FOR UNKNOWN INDICATION
     Route: 048
  2. PURINETHOL [Concomitant]
     Indication: PRODUCT USED FOR UNKNOWN INDICATION
     Dosage: AT BED TIME
     Route: 048
     Dates: end: 20100812
  3. LYRICA [Concomitant]
     Indication: HERPES ZOSTER
  4. LYRICA [Concomitant]
     Indication: NEURALGIA
     Dosage: AT 7, 11, 15 AND 21 HOUR
     Route: 048
  5. MESALAMINE [Concomitant]
     Indication: PRODUCT USED FOR UNKNOWN INDICATION
     Route: 048
  6. HUMIRA [Suspect]
     Indication: COLITIS ULCERATIVE
     Route: 058
     Dates: start: 20091211, end: 20100813
  7. SYNTHROID [Concomitant]
     Indication: HYPOTHYROIDISM
     Dosage: AT 8 AM
     Route: 048

REACTIONS (9)
  - ANAL STENOSIS [None]
  - CONSTIPATION [None]
  - INTESTINAL OBSTRUCTION [None]
  - GASTROINTESTINAL STENOSIS [None]
  - HAEMATOCHEZIA [None]
  - RECTAL HAEMORRHAGE [None]
  - HEADACHE [None]
  - CONDITION AGGRAVATED [None]
  - ABDOMINAL DISTENSION [None]
